FAERS Safety Report 7012824-5 (Version None)
Quarter: 2010Q3

REPORT INFORMATION
  Report Type: 
  Country: None (occurrence: None)
  Receive Date: 20100924
  Receipt Date: 20100917
  Transmission Date: 20110219
  Serious: Yes (Hospitalization)
  Sender: FDA-Public Use
  Company Number: B0675071A

PATIENT
  Sex: Female

DRUGS (14)
  1. AUGMENTIN '125' [Suspect]
     Indication: ERYSIPELAS
     Dosage: 1G THREE TIMES PER DAY
     Route: 048
     Dates: start: 20100702, end: 20100707
  2. BRISTOPEN [Suspect]
     Indication: ERYSIPELAS
     Dosage: 1G TWICE PER DAY
     Route: 048
     Dates: start: 20100630, end: 20100702
  3. ALTEIS [Suspect]
     Dosage: 30MG PER DAY
     Route: 048
     Dates: end: 20100707
  4. METFORMIN [Suspect]
     Dosage: 1000MG THREE TIMES PER DAY
     Route: 048
     Dates: end: 20100707
  5. AMAREL [Suspect]
     Dosage: 4MG PER DAY
     Route: 048
     Dates: end: 20100707
  6. LEVEMIR [Suspect]
     Dosage: 40IU PER DAY
     Route: 065
     Dates: end: 20100705
  7. VASTEN [Concomitant]
     Route: 048
  8. FLUDROCORTISONE [Concomitant]
     Route: 065
  9. HYDROCORTISONE [Concomitant]
     Route: 065
  10. BONIVA [Concomitant]
     Route: 065
  11. OROCAL D3 [Concomitant]
     Route: 065
  12. AERIUS [Concomitant]
     Route: 065
  13. EFFERALGAN [Concomitant]
     Route: 065
  14. LEVOTHYROXINE SODIUM [Concomitant]
     Route: 065

REACTIONS (16)
  - ACCIDENTAL OVERDOSE [None]
  - DEHYDRATION [None]
  - DIARRHOEA [None]
  - ELECTROCARDIOGRAM ABNORMAL [None]
  - GENERAL PHYSICAL HEALTH DETERIORATION [None]
  - HYPERKALAEMIA [None]
  - HYPOGLYCAEMIA [None]
  - HYPONATRAEMIA [None]
  - KETONURIA [None]
  - LACTIC ACIDOSIS [None]
  - MALAISE [None]
  - RENAL FAILURE ACUTE [None]
  - THIRST [None]
  - TONGUE DRY [None]
  - VOMITING [None]
  - WEIGHT DECREASED [None]
